FAERS Safety Report 4759920-0 (Version None)
Quarter: 2005Q3

REPORT INFORMATION
  Report Type: 
  Country: None (occurrence: None)
  Receive Date: 20050902
  Receipt Date: 20050823
  Transmission Date: 20060218
  Serious: Yes (Death, Hospitalization)
  Sender: FDA-Public Use
  Company Number: US-BRISTOL-MYERS SQUIBB COMPANY-13086780

PATIENT
  Age: 97 Year
  Sex: Female
  Weight: 3 kg

DRUGS (5)
  1. PRAVACHOL [Suspect]
     Indication: BLOOD CHOLESTEROL INCREASED
     Route: 048
  2. NITRO-BID [Concomitant]
  3. COREG [Concomitant]
  4. LASIX [Concomitant]
  5. ALTACE [Concomitant]

REACTIONS (2)
  - DEATH [None]
  - HIP FRACTURE [None]
